FAERS Safety Report 20330430 (Version 1)
Quarter: 2022Q1

REPORT INFORMATION
  Report Type: Spontaneous
  Country: US (occurrence: US)
  Receive Date: 20220113
  Receipt Date: 20220113
  Transmission Date: 20220423
  Serious: No
  Sender: FDA-Public Use
  Company Number: US-BION-010098

PATIENT
  Age: 82 Year
  Sex: Female
  Weight: 61.22 kg

DRUGS (6)
  1. LORATADINE [Suspect]
     Active Substance: LORATADINE
     Indication: Sinusitis
     Dosage: STRENGTH: 10MG, ONCE DAILY
     Route: 048
     Dates: start: 20201221, end: 20201223
  2. TOCOPHEROL [Concomitant]
     Active Substance: TOCOPHEROL
  3. XARELTO [Concomitant]
     Active Substance: RIVAROXABAN
  4. CHONDROITIN [Concomitant]
     Active Substance: CHONDROITIN
  5. DIMETHYL SULFONE [Concomitant]
     Active Substance: DIMETHYL SULFONE
  6. PRAVASTATIN [Concomitant]
     Active Substance: PRAVASTATIN
     Dates: start: 2015

REACTIONS (2)
  - Poor quality sleep [Unknown]
  - Product use in unapproved indication [Not Recovered/Not Resolved]

NARRATIVE: CASE EVENT DATE: 20201221
